FAERS Safety Report 4722197-6 (Version None)
Quarter: 2005Q3

REPORT INFORMATION
  Report Type: 
  Country: None (occurrence: None)
  Receive Date: 20050722
  Receipt Date: 20040901
  Transmission Date: 20060218
  Serious: No
  Sender: FDA-Public Use
  Company Number: US-GLAXOSMITHKLINE-A0524229A

PATIENT
  Sex: Female

DRUGS (2)
  1. AVANDIA [Suspect]
     Dosage: 4MG PER DAY
     Route: 048
     Dates: start: 20040831
  2. GLUCOPHAGE [Concomitant]

REACTIONS (3)
  - DYSPEPSIA [None]
  - INSOMNIA [None]
  - RESPIRATORY TRACT CONGESTION [None]
